FAERS Safety Report 8537868 (Version 2)
Quarter: 2013Q4

REPORT INFORMATION
  Report Type: Spontaneous
  Country: US (occurrence: US)
  Receive Date: 20120501
  Receipt Date: 20131127
  Transmission Date: 20140711
  Serious: Yes (Other)
  Sender: FDA-Public Use
  Company Number: PHEH2012US008705

PATIENT
  Sex: Female

DRUGS (5)
  1. SANDOSTATIN LAR DEPOT [Suspect]
     Indication: CARCINOID SYNDROME
     Dosage: 40 MG, EVERY 25 DAYS
     Route: 030
  2. SANDOSTATIN LAR DEPOT [Suspect]
     Dosage: 50 MG, EVERY 25 DAYS
     Route: 030
  3. SYNTHROID [Concomitant]
     Dosage: 137 MG, UNK
  4. MULTIPLE VITAMINS [Concomitant]
     Dosage: UNK UKN, UNK
  5. CALCIUM [Concomitant]
     Dosage: UNK UKN, UNK

REACTIONS (14)
  - Fat necrosis [Unknown]
  - Hepatic necrosis [Unknown]
  - Cellulitis [Unknown]
  - Drug level decreased [Unknown]
  - Injection site inflammation [Unknown]
  - Injection site mass [Unknown]
  - Bone pain [Unknown]
  - Arthralgia [Unknown]
  - Pain [Not Recovered/Not Resolved]
  - Pain in extremity [Unknown]
  - Constipation [Unknown]
  - Diarrhoea [Unknown]
  - Injection site pain [Unknown]
  - Drug administration error [Unknown]
